FAERS Safety Report 6841460-6 (Version None)
Quarter: 2010Q3

REPORT INFORMATION
  Report Type: 
  Country: None (occurrence: None)
  Receive Date: 20100714
  Receipt Date: 20070705
  Transmission Date: 20110219
  Serious: No
  Sender: FDA-Public Use
  Company Number: US-PFIZER INC-2007057169

PATIENT
  Sex: Male
  Weight: 82.1 kg

DRUGS (6)
  1. CHANTIX [Suspect]
     Indication: SMOKING CESSATION THERAPY
     Dates: start: 20070611
  2. NICOTINE [Concomitant]
  3. DIURETICS [Concomitant]
  4. TAMSULOSIN HYDROCHLORIDE [Concomitant]
  5. MOBIC [Concomitant]
  6. SYNTHROID [Concomitant]

REACTIONS (2)
  - FATIGUE [None]
  - SOMNOLENCE [None]
